FAERS Safety Report 15860835 (Version 4)
Quarter: 2019Q2

REPORT INFORMATION
  Report Type: Spontaneous
  Country: US (occurrence: US)
  Receive Date: 20190124
  Receipt Date: 20190424
  Transmission Date: 20190711
  Serious: Yes (Other)
  Sender: FDA-Public Use
  Company Number: US-BRISTOL-MYERS SQUIBB COMPANY-BMS-2019-005129

PATIENT
  Sex: Female
  Weight: 80.27 kg

DRUGS (1)
  1. ORENCIA [Suspect]
     Active Substance: ABATACEPT
     Indication: RHEUMATOID ARTHRITIS
     Dosage: 125 MG, QWK
     Route: 058
     Dates: start: 201812

REACTIONS (10)
  - Pain [Unknown]
  - Headache [Unknown]
  - Pain in extremity [Unknown]
  - Skin laceration [Unknown]
  - Cough [Unknown]
  - Influenza like illness [Unknown]
  - Fall [Unknown]
  - Nausea [Unknown]
  - Staphylococcal infection [Unknown]
  - Fatigue [Unknown]
